FAERS Safety Report 10729966 (Version 1)
Quarter: 2015Q1

REPORT INFORMATION
  Report Type: Spontaneous
  Country: US (occurrence: None)
  Receive Date: 20150121
  Receipt Date: 20150121
  Transmission Date: 20150721
  Serious: Yes (Hospitalization)
  Sender: FDA-Public Use
  Company Number: None

PATIENT
  Age: 71 Year
  Sex: Male
  Weight: 108.2 kg

DRUGS (1)
  1. LOSARTAN [Suspect]
     Active Substance: LOSARTAN
     Indication: HYPERTENSION
     Route: 048
     Dates: start: 20140820, end: 20141009

REACTIONS (1)
  - Angioedema [None]

NARRATIVE: CASE EVENT DATE: 20141008
